FAERS Safety Report 19920970 (Version 1)
Quarter: 2021Q4

REPORT INFORMATION
  Report Type: Spontaneous
  Country: US (occurrence: US)
  Receive Date: 20211005
  Receipt Date: 20211005
  Transmission Date: 20220303
  Serious: No
  Sender: FDA-Public Use
  Company Number: US-ADAMAS PHARMA, LLC-2021ADA00687

PATIENT
  Age: 60 Year
  Sex: Female
  Weight: 63.04 kg

DRUGS (14)
  1. GOCOVRI [Suspect]
     Active Substance: AMANTADINE
     Indication: Dyskinesia
     Dosage: 137 MG, 1X/DAY AT BEDTIME
     Route: 048
     Dates: start: 20201031, end: 20201106
  2. GOCOVRI [Suspect]
     Active Substance: AMANTADINE
     Dosage: 274 MG, 1X/DAY AT BEDTIME
     Route: 048
     Dates: start: 20201107
  3. ARMOUR THYROID [Concomitant]
     Active Substance: THYROID, PORCINE
  4. CARBIDOPA\LEVODOPA [Concomitant]
     Active Substance: CARBIDOPA\LEVODOPA
  5. OCREVUS [Concomitant]
     Active Substance: OCRELIZUMAB
     Dosage: UNK, 2X/YEAR
  6. VITAMIN D [Concomitant]
     Active Substance: VITAMIN D NOS
  7. VITAMIN C [Concomitant]
     Active Substance: ASCORBIC ACID
  8. ZINC [Concomitant]
     Active Substance: ZINC
  9. BACLOFEN [Concomitant]
     Active Substance: BACLOFEN
  10. LISINOPRIL [Concomitant]
     Active Substance: LISINOPRIL
  11. GABAPENTIN [Concomitant]
     Active Substance: GABAPENTIN
  12. ESCITALOPRAM [Concomitant]
     Active Substance: ESCITALOPRAM OXALATE
  13. PROPRANOLOL [Concomitant]
     Active Substance: PROPRANOLOL HYDROCHLORIDE
  14. COLLAGEN [Concomitant]
     Active Substance: COLLAGEN
     Dosage: UNK IN HER COFFEE

REACTIONS (1)
  - Livedo reticularis [Not Recovered/Not Resolved]

NARRATIVE: CASE EVENT DATE: 20210301
